FAERS Safety Report 16974294 (Version 1)
Quarter: 2019Q4

REPORT INFORMATION
  Report Type: Report from Study
  Country: HN (occurrence: HN)
  Receive Date: 20191030
  Receipt Date: 20191030
  Transmission Date: 20200122
  Serious: Yes (Other)
  Sender: FDA-Public Use
  Company Number: NVSC2019HN019079

PATIENT
  Age: 66 Year
  Sex: Male

DRUGS (1)
  1. DIOVAN [Suspect]
     Active Substance: VALSARTAN
     Indication: PRODUCT USED FOR UNKNOWN INDICATION
     Dosage: 320 MG, 3 YEARS AGO
     Route: 065
     Dates: end: 20191028

REACTIONS (3)
  - Hypertensive crisis [Unknown]
  - Hypertension [Unknown]
  - Drug ineffective [Unknown]
